FAERS Safety Report 8937071 (Version 1)
Quarter: 2012Q4

REPORT INFORMATION
  Report Type: 
  Country: CN (occurrence: CN)
  Receive Date: 20121129
  Receipt Date: 20121129
  Transmission Date: 20130627
  Serious: Yes (Hospitalization, Other)
  Sender: FDA-Public Use
  Company Number: PHHY2012CN108902

PATIENT
  Sex: Male
  Weight: 60 kg

DRUGS (1)
  1. SEBIVO [Suspect]
     Indication: CHRONIC HEPATITIS B
     Dosage: 0.6 g, QD
     Route: 048
     Dates: start: 20071116, end: 20081015

REACTIONS (3)
  - Back pain [Recovered/Resolved]
  - Coronary artery disease [Unknown]
  - Blood creatine phosphokinase increased [Unknown]
